FAERS Safety Report 12196526 (Version 1)
Quarter: 2016Q1

REPORT INFORMATION
  Report Type: Spontaneous
  Country: US (occurrence: US)
  Receive Date: 20160321
  Receipt Date: 20160321
  Transmission Date: 20160526
  Serious: Yes (Other)
  Sender: FDA-Public Use
  Company Number: US-SUNOVION-2016SUN000689

PATIENT
  Age: 60 Year
  Sex: Male

DRUGS (4)
  1. APTIOM [Suspect]
     Active Substance: ESLICARBAZEPINE ACETATE
     Indication: SEIZURE
     Dosage: 1200 MG, UNK
     Route: 048
  2. LACOSAMIDE [Concomitant]
     Active Substance: LACOSAMIDE
     Dosage: UNK
     Route: 065
  3. APTIOM [Suspect]
     Active Substance: ESLICARBAZEPINE ACETATE
     Dosage: 800 MG, QD
     Route: 048
  4. DILANTIN [Suspect]
     Active Substance: PHENYTOIN
     Dosage: UNK
     Route: 065

REACTIONS (2)
  - Hyponatraemia [Unknown]
  - Labelled drug-drug interaction medication error [Unknown]
